FAERS Safety Report 9329545 (Version 1)
Quarter: 2013Q2

REPORT INFORMATION
  Report Type: Spontaneous
  Country: US (occurrence: US)
  Receive Date: 20130604
  Receipt Date: 20130604
  Transmission Date: 20140414
  Serious: No
  Sender: FDA-Public Use
  Company Number: US-SANOFI-AVENTIS-2012SA088029

PATIENT
  Age: 77 Year
  Sex: Male
  Weight: 93.4 kg

DRUGS (8)
  1. SOLOSTAR [Suspect]
     Indication: TYPE 2 DIABETES MELLITUS
     Dates: start: 2011
  2. LANTUS SOLOSTAR [Suspect]
     Indication: TYPE 2 DIABETES MELLITUS
     Dosage: 34 UNITS AM AND 22 UNITS PM
     Route: 058
     Dates: start: 2011
  3. NOVOLOG [Concomitant]
     Indication: DIABETES MELLITUS
     Dosage: DOSE:25 UNIT(S)
  4. KCL [Concomitant]
     Indication: ELECTROLYTE SUBSTITUTION THERAPY
     Dates: start: 201201
  5. LASIX [Concomitant]
     Indication: FLUID RETENTION
  6. CODEINE [Concomitant]
     Indication: CARDIAC FAILURE CONGESTIVE
     Dates: start: 201201
  7. INSPRA [Concomitant]
     Indication: CARDIAC FAILURE CONGESTIVE
     Dates: start: 201201
  8. ACETYLSALICYLIC ACID [Concomitant]
     Indication: CARDIAC FAILURE CONGESTIVE
     Dates: start: 2011

REACTIONS (1)
  - Injury associated with device [Recovered/Resolved]
